FAERS Safety Report 26090410 (Version 1)
Quarter: 2025Q4

REPORT INFORMATION
  Report Type: Spontaneous
  Country: EU (occurrence: EU)
  Receive Date: 20251126
  Receipt Date: 20251126
  Transmission Date: 20260117
  Serious: Yes (Other)
  Sender: AUROBINDO
  Company Number: EU-ABBVIE-6505354

PATIENT
  Age: 74 Year
  Sex: Male

DRUGS (3)
  1. AMOXICILLIN\CLAVULANIC ACID [Suspect]
     Active Substance: AMOXICILLIN\CLAVULANIC ACID
     Indication: Stoma site infection
     Dosage: 875 MILLIGRAM, 3 TIMES A DAY (DISCONTINUED IN OCT 2025)
     Dates: start: 20251010
  2. AMOXICILLIN\CLAVULANIC ACID [Suspect]
     Active Substance: AMOXICILLIN\CLAVULANIC ACID
     Dosage: UNK
  3. FOSCARBIDOPA\FOSLEVODOPA [Suspect]
     Active Substance: FOSCARBIDOPA\FOSLEVODOPA
     Indication: Parkinson^s disease
     Dosage: UNK (THERAPY END DATE: OCT 2025)
     Route: 065

REACTIONS (5)
  - Aggression [Recovering/Resolving]
  - Compulsions [Recovering/Resolving]
  - Delusion [Recovering/Resolving]
  - On and off phenomenon [Recovered/Resolved]
  - Stoma site infection [Recovering/Resolving]

NARRATIVE: CASE EVENT DATE: 20251001
